FAERS Safety Report 5874971-0 (Version None)
Quarter: 2008Q3

REPORT INFORMATION
  Report Type: 
  Country: None (occurrence: None)
  Receive Date: 20080908
  Receipt Date: 20080908
  Transmission Date: 20090109
  Serious: No
  Sender: FDA-Public Use
  Company Number: None

PATIENT
  Age: 45 Year
  Sex: Female
  Weight: 86.1834 kg

DRUGS (1)
  1. FLONASE [Suspect]
     Indication: MULTIPLE ALLERGIES
     Dosage: 2 SPRAYS IN EACH NOSTRIL ONCE A DAY
     Route: 045
     Dates: start: 20040301, end: 20050401

REACTIONS (2)
  - DYSGEUSIA [None]
  - PAROSMIA [None]
